FAERS Safety Report 12776627 (Version 2)
Quarter: 2016Q4

REPORT INFORMATION
  Report Type: Report from Study
  Country: US (occurrence: US)
  Receive Date: 20160923
  Receipt Date: 20161012
  Transmission Date: 20170207
  Serious: Yes (Hospitalization)
  Sender: FDA-Public Use
  Company Number: US-JNJFOC-20160900051

PATIENT
  Age: 87 Year
  Sex: Male

DRUGS (17)
  1. PREDNISONE. [Concomitant]
     Active Substance: PREDNISONE
  2. LATANOPROST. [Concomitant]
     Active Substance: LATANOPROST
  3. IMBRUVICA [Suspect]
     Active Substance: IBRUTINIB
     Indication: CHRONIC MYELOID LEUKAEMIA
     Route: 048
     Dates: start: 20160825, end: 20160826
  4. PRAVASTATIN. [Concomitant]
     Active Substance: PRAVASTATIN
  5. METOPROLOL. [Concomitant]
     Active Substance: METOPROLOL
  6. NORCO [Concomitant]
     Active Substance: ACETAMINOPHEN\HYDROCODONE BITARTRATE
  7. NYSTATIN. [Concomitant]
     Active Substance: NYSTATIN
  8. ALLOPURINOL. [Concomitant]
     Active Substance: ALLOPURINOL
  9. ASPRIN [Concomitant]
     Active Substance: ASPIRIN
  10. RESTORIL [Concomitant]
     Active Substance: TEMAZEPAM
  11. RANITIDINE. [Concomitant]
     Active Substance: RANITIDINE
  12. ZOFRAN [Concomitant]
     Active Substance: ONDANSETRON HYDROCHLORIDE
  13. ASPIRIN. [Concomitant]
     Active Substance: ASPIRIN
  14. POTASSIUM [Concomitant]
     Active Substance: POTASSIUM
  15. ONDANSETRON [Concomitant]
     Active Substance: ONDANSETRON
  16. FLUCONAZOLE. [Concomitant]
     Active Substance: FLUCONAZOLE
  17. TRIAMCINOLONE [Concomitant]
     Active Substance: TRIAMCINOLONE

REACTIONS (3)
  - Off label use [Recovered/Resolved]
  - Kidney infection [Not Recovered/Not Resolved]
  - Product use issue [Recovered/Resolved]

NARRATIVE: CASE EVENT DATE: 20160825
